FAERS Safety Report 4855607-4 (Version None)
Quarter: 2005Q4

REPORT INFORMATION
  Report Type: 
  Country: None (occurrence: None)
  Receive Date: 20051216
  Receipt Date: 20051206
  Transmission Date: 20060501
  Serious: Yes (Other)
  Sender: FDA-Public Use
  Company Number: GB-BRISTOL-MYERS SQUIBB COMPANY-13204839

PATIENT
  Age: 61 Year
  Sex: Female
  Weight: 70 kg

DRUGS (14)
  1. NYSTATIN [Suspect]
     Indication: ORAL CANDIDIASIS
     Route: 048
     Dates: start: 20050903, end: 20051001
  2. FLUCONAZOLE [Suspect]
     Route: 048
     Dates: start: 20050930, end: 20051001
  3. SALBUTAMOL [Concomitant]
     Route: 055
  4. BETAHISTINE DIHYDROCHLORIDE [Concomitant]
     Route: 048
  5. PROCHLORPERAZINE MALEATE [Concomitant]
     Route: 048
  6. LOPERAMIDE HCL [Concomitant]
     Dosage: PATIENT WAS TAKING 2 TO 6 MG DAILY
     Route: 048
  7. PARAFFIN [Concomitant]
     Route: 047
  8. OMEPRAZOLE [Concomitant]
     Route: 048
  9. BECLOMETHASONE DIPROPIONATE [Concomitant]
     Route: 055
  10. DIAZEPAM [Concomitant]
     Route: 048
  11. TEMAZEPAM [Concomitant]
     Route: 048
  12. GAVISCON [Concomitant]
     Route: 048
  13. CO-CODAMOL [Concomitant]
     Route: 048
  14. DOMPERIDONE [Concomitant]
     Route: 048

REACTIONS (2)
  - PHOTOSENSITIVITY REACTION [None]
  - URTICARIA [None]
